FAERS Safety Report 24901235 (Version 1)
Quarter: 2025Q1

REPORT INFORMATION
  Report Type: Spontaneous
  Country: US (occurrence: US)
  Receive Date: 20250129
  Receipt Date: 20250129
  Transmission Date: 20250409
  Serious: No
  Sender: SIGMAPHARM
  Company Number: US-SIGMAPHARM LABORATORIES, LLC-2024SIG00070

PATIENT
  Sex: Female

DRUGS (2)
  1. ASENAPINE [Suspect]
     Active Substance: ASENAPINE
     Indication: Bipolar disorder
     Dosage: 5 MG, 1X/DAY IN THE MORNING
     Route: 060
  2. ASENAPINE [Suspect]
     Active Substance: ASENAPINE
     Dosage: 10 MG, 1X/DAY IN THE EVENING
     Route: 060

REACTIONS (2)
  - Oral discomfort [Not Recovered/Not Resolved]
  - Wrong technique in product usage process [Not Recovered/Not Resolved]
